FAERS Safety Report 10875263 (Version 2)
Quarter: 2015Q1

REPORT INFORMATION
  Report Type: Report from Study
  Country: US (occurrence: US)
  Receive Date: 20150227
  Receipt Date: 20150306
  Transmission Date: 20150721
  Serious: Yes (Hospitalization, Other)
  Sender: FDA-Public Use
  Company Number: US-009507513-1502USA009111

PATIENT
  Age: 42 Year
  Sex: Female

DRUGS (9)
  1. HUMIRA [Suspect]
     Active Substance: ADALIMUMAB
     Indication: RHEUMATOID ARTHRITIS
     Dosage: 40 MG, QOW, SOLUTION FOR INJECTION IN PRE-FILLED
     Route: 065
     Dates: start: 2012
  2. KLONOPIN [Concomitant]
     Active Substance: CLONAZEPAM
     Indication: ANXIETY
     Dosage: 2 MG, TID
  3. ZOCOR [Suspect]
     Active Substance: SIMVASTATIN
     Dosage: 40 MG, QD
     Route: 065
     Dates: start: 2014
  4. LATUDA [Suspect]
     Active Substance: LURASIDONE HYDROCHLORIDE
     Route: 065
  5. LUNESTA [Concomitant]
     Active Substance: ESZOPICLONE
     Indication: SLEEP DISORDER
     Dosage: 0.3 MG, UNK
  6. AGGRENOX [Suspect]
     Active Substance: ASPIRIN\DIPYRIDAMOLE
     Indication: PRODUCT USED FOR UNKNOWN INDICATION
     Dosage: UNK
     Route: 065
     Dates: start: 2014, end: 2014
  7. TRILEPTAL [Suspect]
     Active Substance: OXCARBAZEPINE
     Indication: AFFECTIVE DISORDER
     Dosage: 150 MG, BID
     Route: 065
     Dates: start: 2014
  8. ZOCOR [Suspect]
     Active Substance: SIMVASTATIN
     Indication: CEREBROVASCULAR ACCIDENT PROPHYLAXIS
     Dosage: 20 MG, QD
     Route: 065
     Dates: start: 2014, end: 2014
  9. ASPIRIN. [Suspect]
     Active Substance: ASPIRIN
     Indication: PRODUCT USED FOR UNKNOWN INDICATION
     Dosage: 81 MG, QD
     Route: 065
     Dates: start: 2014

REACTIONS (17)
  - Surgery [Unknown]
  - Back pain [Unknown]
  - Cardiac disorder [Unknown]
  - Incorrect product storage [Unknown]
  - Road traffic accident [Unknown]
  - Cerebrovascular accident [Unknown]
  - Cyst [Unknown]
  - Abdominal pain [Recovering/Resolving]
  - Upper limb fracture [Unknown]
  - Contusion [Unknown]
  - Abdominal distension [Recovering/Resolving]
  - Haemorrhage [Unknown]
  - Tooth abscess [Unknown]
  - Mood altered [Unknown]
  - Poor quality drug administered [Unknown]
  - Fall [Unknown]
  - Injury [Unknown]

NARRATIVE: CASE EVENT DATE: 2013
